FAERS Safety Report 10993447 (Version 1)
Quarter: 2015Q2

REPORT INFORMATION
  Report Type: Spontaneous
  Country: US (occurrence: None)
  Receive Date: 20150406
  Receipt Date: 20150406
  Transmission Date: 20150821
  Serious: Yes (Other)
  Sender: FDA-Public Use
  Company Number: None

PATIENT
  Age: 38 Year
  Sex: Male
  Weight: 115.67 kg

DRUGS (1)
  1. LISINOPRIL. [Suspect]
     Active Substance: LISINOPRIL
     Indication: HYPERTENSION
     Dosage: TAKEN BY MOUTH
     Dates: start: 20150303, end: 20150404

REACTIONS (5)
  - Dyskinesia [None]
  - Nasal flaring [None]
  - Eye disorder [None]
  - Abdominal pain upper [None]
  - Muscle twitching [None]

NARRATIVE: CASE EVENT DATE: 20150317
